FAERS Safety Report 7069543-9 (Version None)
Quarter: 2010Q4

REPORT INFORMATION
  Report Type: 
  Country: None (occurrence: None)
  Receive Date: 20101028
  Receipt Date: 20100326
  Transmission Date: 20110411
  Serious: No
  Sender: FDA-Public Use
  Company Number: US-WYE-H14115110

PATIENT
  Sex: Female

DRUGS (1)
  1. ADVIL COLD AND SINUS [Suspect]
     Indication: RHINORRHOEA
     Dosage: ONE LIGUI GEL EVERY 4-6 HOURS
     Route: 048
     Dates: start: 20100307, end: 20100310

REACTIONS (3)
  - CONDITION AGGRAVATED [None]
  - DRUG INEFFECTIVE [None]
  - RHINORRHOEA [None]
